FAERS Safety Report 13332929 (Version 3)
Quarter: 2017Q3

REPORT INFORMATION
  Report Type: Report from Study
  Country: FR (occurrence: FR)
  Receive Date: 20170313
  Receipt Date: 20170726
  Transmission Date: 20171127
  Serious: Yes (Hospitalization)
  Sender: FDA-Public Use
  Company Number: FR-ROCHE-1899679

PATIENT
  Age: 68 Year
  Sex: Male
  Weight: 83 kg

DRUGS (8)
  1. COBIMETINIB. [Suspect]
     Active Substance: COBIMETINIB
     Indication: MALIGNANT MELANOMA
     Dosage: MOST RECENT DOSE ON PRIOR TO SAE 20/FEB/2017 60 MG?CUMULATIVE DOSE FIRST ADMINISTRATION 1260 MG.
     Route: 048
     Dates: start: 20170130
  2. SORAFENIB [Concomitant]
     Active Substance: SORAFENIB
     Indication: MALIGNANT MELANOMA
     Route: 065
     Dates: start: 20170320
  3. DAFALGAN CODEINE [Concomitant]
     Active Substance: ACETAMINOPHEN\CODEINE PHOSPHATE
     Indication: VIRAL INFECTION
     Route: 048
     Dates: start: 20170214, end: 20170222
  4. SMECTA [Concomitant]
     Active Substance: MONTMORILLONITE
     Indication: DIARRHOEA
     Route: 048
     Dates: start: 20170130, end: 20170221
  5. VEMURAFENIB. [Suspect]
     Active Substance: VEMURAFENIB
     Indication: MALIGNANT MELANOMA
     Dosage: MOST RECENT DOSE ON PRIOR TO SAE 27/FEB/2017 1920 MG?CUMULATIVE DOSE FIRST ADMINISTRATION 105600 MG.
     Route: 048
     Dates: start: 20170130
  6. AUGMENTIN [Concomitant]
     Active Substance: AMOXICILLIN\CLAVULANATE POTASSIUM
     Route: 048
     Dates: start: 20170214, end: 20170222
  7. DESLORATADINE. [Concomitant]
     Active Substance: DESLORATADINE
     Indication: ANGIOEDEMA
     Route: 048
     Dates: start: 2014
  8. MONTELUKAST [Concomitant]
     Active Substance: MONTELUKAST SODIUM
     Indication: ANGIOEDEMA
     Route: 048
     Dates: start: 2014

REACTIONS (2)
  - Hepatocellular injury [Recovered/Resolved]
  - Hepatitis cholestatic [Not Recovered/Not Resolved]

NARRATIVE: CASE EVENT DATE: 20170227
